FAERS Safety Report 9693548 (Version 2)
Quarter: 2014Q1

REPORT INFORMATION
  Report Type: Report from Study
  Country: JP (occurrence: JP)
  Receive Date: 20131118
  Receipt Date: 20140131
  Transmission Date: 20141002
  Serious: Yes (Death)
  Sender: FDA-Public Use
  Company Number: JP-GLAXOSMITHKLINE-B0942165A

PATIENT
  Age: 85 Year
  Sex: Male

DRUGS (5)
  1. REVOLADE [Suspect]
     Indication: IMMUNE THROMBOCYTOPENIC PURPURA
     Dosage: 12.5MG PER DAY
     Route: 048
     Dates: start: 20130524, end: 20131028
  2. TAKEPRON [Concomitant]
     Dosage: 15MG PER DAY
     Route: 048
     Dates: start: 20130524, end: 20130529
  3. FLUITRAN [Concomitant]
     Dosage: 2MG PER DAY
     Route: 048
     Dates: start: 20130524, end: 20131029
  4. SEROQUEL [Concomitant]
     Dosage: 50MG PER DAY
     Route: 048
     Dates: start: 20130524, end: 20131029
  5. MAGMITT [Concomitant]
     Route: 048
     Dates: start: 20130524, end: 20131029

REACTIONS (1)
  - Multi-organ failure [Fatal]
